FAERS Safety Report 8500381-3 (Version None)
Quarter: 2012Q3

REPORT INFORMATION
  Report Type: 
  Country: None (occurrence: None)
  Receive Date: 20120703
  Receipt Date: 20120703
  Transmission Date: 20120928
  Serious: Yes (Other)
  Sender: FDA-Public Use
  Company Number: None

PATIENT
  Age: 48 Year
  Sex: Female
  Weight: 72.5755 kg

DRUGS (1)
  1. FLUOXETINE [Suspect]
     Indication: DEPRESSION
     Dosage: 3 CAPSULES 1 TIME DAILY PO
     Route: 048
     Dates: start: 20120529, end: 20120702

REACTIONS (4)
  - PRODUCT SUBSTITUTION ISSUE [None]
  - DEPRESSION [None]
  - PRODUCT QUALITY ISSUE [None]
  - DISEASE RECURRENCE [None]
